FAERS Safety Report 11826543 (Version 2)
Quarter: 2016Q1

REPORT INFORMATION
  Report Type: Spontaneous
  Country: US (occurrence: US)
  Receive Date: 20151211
  Receipt Date: 20160225
  Transmission Date: 20160525
  Serious: Yes (Other)
  Sender: FDA-Public Use
  Company Number: US-FRI-1000081281

PATIENT
  Sex: Female

DRUGS (14)
  1. TEMAZEPAM. [Concomitant]
     Active Substance: TEMAZEPAM
     Indication: INSOMNIA
     Dosage: 15 MG
  2. VIIBRYD [Suspect]
     Active Substance: VILAZODONE HYDROCHLORIDE
     Dosage: 20 MG
     Route: 048
     Dates: start: 20151122, end: 20151126
  3. OMEPRAZOLE. [Concomitant]
     Active Substance: OMEPRAZOLE
     Indication: CHOLECYSTECTOMY
     Dosage: 40 MG
     Route: 048
  4. METOPROLOL. [Concomitant]
     Active Substance: METOPROLOL
     Indication: HYPERTENSION
     Dosage: 50 MG
  5. OXYCODONE [Concomitant]
     Active Substance: OXYCODONE
     Indication: PAIN
     Dosage: 20 MG
     Route: 048
  6. DIAZEPAM. [Concomitant]
     Active Substance: DIAZEPAM
     Indication: PAIN
     Dosage: 10 MG
     Route: 048
  7. VIIBRYD [Suspect]
     Active Substance: VILAZODONE HYDROCHLORIDE
     Dosage: 10 MG
     Route: 048
     Dates: start: 20151103, end: 20151104
  8. VIIBRYD [Suspect]
     Active Substance: VILAZODONE HYDROCHLORIDE
     Dosage: 40 MG
     Route: 048
     Dates: start: 20151115, end: 20151121
  9. GABAPENTIN. [Concomitant]
     Active Substance: GABAPENTIN
     Indication: PAIN
     Dosage: 900 MG
     Route: 048
  10. FENTANYL. [Concomitant]
     Active Substance: FENTANYL
     Indication: PAIN
     Dosage: 75MCG PATCH CHANGED EVERY 3 DAYS
  11. VIIBRYD [Suspect]
     Active Substance: VILAZODONE HYDROCHLORIDE
     Dosage: 20 MG
     Route: 048
     Dates: start: 20151105, end: 20151114
  12. SYMBICORT [Concomitant]
     Active Substance: BUDESONIDE\FORMOTEROL FUMARATE DIHYDRATE
     Indication: ASTHMA
     Dosage: 1 DOSAE FORMS
     Route: 055
  13. VIIBRYD [Suspect]
     Active Substance: VILAZODONE HYDROCHLORIDE
     Indication: DEPRESSION
     Dosage: 0.5 MG
     Route: 048
     Dates: start: 20151030, end: 20151102
  14. ORPHENADRINE [Concomitant]
     Active Substance: ORPHENADRINE
     Indication: PAIN
     Dosage: 200 MG

REACTIONS (12)
  - Nausea [Recovering/Resolving]
  - Eye movement disorder [Recovering/Resolving]
  - Paranoia [Not Recovered/Not Resolved]
  - Hallucination [Recovering/Resolving]
  - Tremor [Recovering/Resolving]
  - Blindness transient [Recovered/Resolved]
  - Fatigue [Not Recovered/Not Resolved]
  - Headache [Not Recovered/Not Resolved]
  - Seizure [Recovering/Resolving]
  - Intentional product misuse [Recovered/Resolved]
  - Hyperhidrosis [Not Recovered/Not Resolved]
  - Feeling hot [Not Recovered/Not Resolved]

NARRATIVE: CASE EVENT DATE: 20151030
